FAERS Safety Report 6577940-0 (Version None)
Quarter: 2010Q1

REPORT INFORMATION
  Report Type: 
  Country: None (occurrence: None)
  Receive Date: 20100211
  Receipt Date: 20100204
  Transmission Date: 20100710
  Serious: Yes (Hospitalization)
  Sender: FDA-Public Use
  Company Number: JP-SANOFI-AVENTIS-2010SA006480

PATIENT
  Age: 16 Year
  Sex: Male

DRUGS (2)
  1. ALLEGRA [Suspect]
     Indication: DERMATITIS ATOPIC
     Dosage: 60 MG ONCE OR TWICE A DAY
     Route: 048
  2. CORTICOSTEROIDS [Concomitant]
     Indication: DERMATITIS ATOPIC
     Route: 003

REACTIONS (5)
  - ALANINE AMINOTRANSFERASE INCREASED [None]
  - ASPARTATE AMINOTRANSFERASE INCREASED [None]
  - HEADACHE [None]
  - LIVER DISORDER [None]
  - SOMNOLENCE [None]
